FAERS Safety Report 7103223-6 (Version None)
Quarter: 2010Q4

REPORT INFORMATION
  Report Type: 
  Country: None (occurrence: None)
  Receive Date: 20101115
  Receipt Date: 20101101
  Transmission Date: 20110411
  Serious: Yes (Hospitalization, Other)
  Sender: FDA-Public Use
  Company Number: US-PFIZER INC-2010143888

PATIENT
  Age: 48 Year
  Sex: Male

DRUGS (14)
  1. METHOTREXATE [Suspect]
     Indication: SYSTEMIC LUPUS ERYTHEMATOSUS
     Dosage: TITRATED FROM 10MG/WK TO 20MG/WK OVER 6M
     Dates: end: 20041201
  2. SERTRALINE HYDROCHLORIDE [Suspect]
  3. DOXEPIN HCL [Suspect]
  4. DOXORUBICIN HCL [Suspect]
     Dosage: 50 MG/M2, SINGLE
     Route: 042
  5. DOXORUBICIN HCL [Suspect]
     Dosage: UNK
  6. PREDNISONE [Suspect]
     Indication: SYSTEMIC LUPUS ERYTHEMATOSUS
     Dosage: 5 MG, UNK
  7. HYDROXYCHLOROQUINE SULFATE [Suspect]
     Indication: SYSTEMIC LUPUS ERYTHEMATOSUS
  8. DAPSONE [Suspect]
     Indication: SYSTEMIC LUPUS ERYTHEMATOSUS
  9. CLONAZEPAM [Suspect]
  10. ETOPOSIDE [Suspect]
  11. CETIRIZINE HYDROCHLORIDE [Suspect]
  12. VINBLASTINE [Suspect]
     Dosage: 6 MG/M2, SINGLE
     Route: 042
  13. VINBLASTINE [Suspect]
     Dosage: UNK
  14. GRANULOCYTE COLONY STIMULATING FACTOR [Suspect]
     Indication: NEUTROPENIA

REACTIONS (3)
  - HODGKIN'S DISEASE STAGE II [None]
  - LEUKOPENIA [None]
  - RASH GENERALISED [None]
